FAERS Safety Report 9292496 (Version 1)
Quarter: 2013Q2

REPORT INFORMATION
  Report Type: Spontaneous
  Country: US (occurrence: None)
  Receive Date: 20130515
  Receipt Date: 20130515
  Transmission Date: 20140414
  Serious: No
  Sender: FDA-Public Use
  Company Number: None

PATIENT
  Age: 2 Year
  Sex: Female

DRUGS (1)
  1. AUGMENTIN [Suspect]
     Dates: start: 20111011, end: 20111021

REACTIONS (3)
  - Hepatitis [None]
  - Ascites [None]
  - Drug-induced liver injury [None]
